FAERS Safety Report 10584738 (Version 1)
Quarter: 2014Q4

REPORT INFORMATION
  Report Type: Spontaneous
  Country: US (occurrence: None)
  Receive Date: 20141113
  Receipt Date: 20141113
  Transmission Date: 20150529
  Serious: Yes (Hospitalization, Other)
  Sender: FDA-Public Use
  Company Number: ADR-2014-02095

PATIENT
  Age: 24 Year
  Sex: Female

DRUGS (1)
  1. BACLOFEN INTRATHECAL [Suspect]
     Active Substance: BACLOFEN

REACTIONS (9)
  - Procedural complication [None]
  - Musculoskeletal stiffness [None]
  - Somnolence [None]
  - Restlessness [None]
  - Drug withdrawal syndrome [None]
  - Agitation [None]
  - Device breakage [None]
  - Insomnia [None]
  - Pruritus [None]
